FAERS Safety Report 13945485 (Version 8)
Quarter: 2020Q4

REPORT INFORMATION
  Report Type: Spontaneous
  Country: US (occurrence: US)
  Receive Date: 20170907
  Receipt Date: 20201105
  Transmission Date: 20210113
  Serious: No
  Sender: FDA-Public Use
  Company Number: US-PFIZER INC-2017383404

PATIENT
  Age: 46 Year
  Sex: Female
  Weight: 77.11 kg

DRUGS (5)
  1. GENOTROPIN MQ [Suspect]
     Active Substance: SOMATROPIN
     Dosage: 0.4 MG, DAILY
     Dates: start: 20150520
  2. GENOTROPIN MQ [Suspect]
     Active Substance: SOMATROPIN
     Dosage: 0.2 MG, 2X/DAY
  3. GENOTROPIN MQ [Suspect]
     Active Substance: SOMATROPIN
     Indication: CRANIOCEREBRAL INJURY
     Dosage: 0.4 MG, DAILY ALTERNATE WITH 0.2 MG
  4. GENOTROPIN MQ [Suspect]
     Active Substance: SOMATROPIN
     Indication: VITAMIN D DEFICIENCY
     Dosage: 0.2 MG, DAILY ALTERNATE WITH 0.4 MG
  5. GENOTROPIN MQ [Suspect]
     Active Substance: SOMATROPIN
     Indication: OBESITY
     Dosage: 0.4 MG, DAILY
     Route: 058
     Dates: start: 201504

REACTIONS (21)
  - Product prescribing error [Unknown]
  - Product complaint [Unknown]
  - Arthralgia [Unknown]
  - Red cell distribution width increased [Unknown]
  - Malaise [Unknown]
  - Product use in unapproved indication [Unknown]
  - Feeling drunk [Unknown]
  - Hangover [Unknown]
  - Musculoskeletal stiffness [Unknown]
  - Low density lipoprotein increased [Unknown]
  - Therapeutic response unexpected [Unknown]
  - Hypoaesthesia [Unknown]
  - Dizziness [Unknown]
  - Blood cholesterol increased [Unknown]
  - Feeling abnormal [Unknown]
  - Fatigue [Unknown]
  - Euphoric mood [Unknown]
  - Off label use [Unknown]
  - Somnolence [Unknown]
  - Blood triglycerides increased [Unknown]
  - Insulin-like growth factor increased [Unknown]

NARRATIVE: CASE EVENT DATE: 20181228
